FAERS Safety Report 24365426 (Version 3)
Quarter: 2024Q4

REPORT INFORMATION
  Report Type: Report from Study
  Country: CO (occurrence: CO)
  Receive Date: 20240926
  Receipt Date: 20241231
  Transmission Date: 20250115
  Serious: Yes (Hospitalization, Other)
  Sender: TAKEDA
  Company Number: CO-TAKEDA-2024TUS094725

PATIENT
  Age: 2 Year
  Sex: Female
  Weight: 10 kg

DRUGS (1)
  1. HUMAN IMMUNOGLOBULIN G\HYALURONIDASE RECOMBINANT HUMAN [Suspect]
     Active Substance: HUMAN IMMUNOGLOBULIN G\HYALURONIDASE (HUMAN RECOMBINANT)
     Indication: Primary immunodeficiency syndrome
     Dosage: 5 GRAM, Q3WEEKS
     Dates: start: 20240914

REACTIONS (3)
  - Pneumonia [Not Recovered/Not Resolved]
  - Respiratory tract infection viral [Recovered/Resolved]
  - Product prescribing issue [Unknown]

NARRATIVE: CASE EVENT DATE: 20241006
